FAERS Safety Report 13671951 (Version 3)
Quarter: 2019Q2

REPORT INFORMATION
  Report Type: Spontaneous
  Country: US (occurrence: US)
  Receive Date: 20170621
  Receipt Date: 20190510
  Transmission Date: 20190711
  Serious: No
  Sender: FDA-Public Use
  Company Number: US-PFIZER INC-2017265290

PATIENT
  Sex: Female

DRUGS (3)
  1. LYRICA [Suspect]
     Active Substance: PREGABALIN
     Indication: FIBROMYALGIA
     Dosage: 75 MG, 2X/DAY
  2. LYRICA [Suspect]
     Active Substance: PREGABALIN
     Dosage: 150 MG, 3X/DAY
  3. CYMBALTA [Concomitant]
     Active Substance: DULOXETINE HYDROCHLORIDE
     Dosage: UNK

REACTIONS (11)
  - Hyperhidrosis [Unknown]
  - Weight increased [Unknown]
  - Nausea [Unknown]
  - Palpitations [Unknown]
  - Withdrawal syndrome [Unknown]
  - Vomiting [Unknown]
  - Myalgia [Unknown]
  - Pain [Unknown]
  - Drug ineffective [Unknown]
  - Tremor [Unknown]
  - Headache [Unknown]
